FAERS Safety Report 15906212 (Version 3)
Quarter: 2020Q3

REPORT INFORMATION
  Report Type: Report from Study
  Country: FR (occurrence: FR)
  Receive Date: 20190204
  Receipt Date: 20200716
  Transmission Date: 20201102
  Serious: Yes (Hospitalization)
  Sender: FDA-Public Use
  Company Number: FR-PFIZER INC-2018385591

PATIENT
  Age: 52 Year
  Sex: Female
  Weight: 51 kg

DRUGS (3)
  1. XALKORI [Suspect]
     Active Substance: CRIZOTINIB
     Indication: NON-SMALL CELL LUNG CANCER
     Dosage: 250 MG, 2X/DAY
     Dates: start: 20180626, end: 201811
  2. XALKORI [Suspect]
     Active Substance: CRIZOTINIB
     Dosage: 250 UNK, UNK
     Dates: start: 201811, end: 201901
  3. XALKORI [Suspect]
     Active Substance: CRIZOTINIB
     Dosage: 200 MG, 2X/DAY: MORNING AND EVENING
     Dates: start: 201901, end: 20190228

REACTIONS (6)
  - Bradycardia [Recovered/Resolved]
  - Decreased appetite [Recovered/Resolved]
  - General physical health deterioration [Recovered/Resolved]
  - Bronchitis [Recovered/Resolved]
  - Visual impairment [Recovered/Resolved]
  - Cholecystitis acute [Recovering/Resolving]

NARRATIVE: CASE EVENT DATE: 2018
